FAERS Safety Report 5615300-7 (Version None)
Quarter: 2008Q1

REPORT INFORMATION
  Report Type: 
  Country: None (occurrence: None)
  Receive Date: 20080206
  Receipt Date: 20080130
  Transmission Date: 20080703
  Serious: Yes (Other)
  Sender: FDA-Public Use
  Company Number: US-BAYER-200810474BCC

PATIENT
  Age: 32 Year
  Sex: Male
  Weight: 104 kg

DRUGS (2)
  1. ALEVE [Suspect]
     Indication: NASOPHARYNGITIS
     Dosage: AS USED: 440 MG  UNIT DOSE: 220 MG
     Route: 048
     Dates: start: 20080130
  2. PRIMATENE MIST [Concomitant]

REACTIONS (2)
  - DYSPHAGIA [None]
  - DYSPNOEA [None]
